FAERS Safety Report 4821252-X (Version None)
Quarter: 2005Q4

REPORT INFORMATION
  Report Type: 
  Country: None (occurrence: None)
  Receive Date: 20051107
  Receipt Date: 20051028
  Transmission Date: 20060501
  Serious: Yes (Hospitalization)
  Sender: FDA-Public Use
  Company Number: PHEH2005US11956

PATIENT
  Age: 42 Year
  Sex: Male

DRUGS (14)
  1. CLOZARIL [Suspect]
     Indication: SCHIZOPHRENIA
     Dosage: 600 MG, QD
     Route: 048
  2. LEXAPRO [Concomitant]
  3. KLONOPIN [Concomitant]
  4. ARICEPT [Concomitant]
  5. ACTIGALL [Concomitant]
  6. VITAMIN E [Concomitant]
  7. ASACOL [Concomitant]
  8. ROWASA [Concomitant]
  9. DITROPAN XL [Concomitant]
  10. MIRALAX [Concomitant]
  11. METAMUCIL [Concomitant]
  12. PERI-COLACE [Concomitant]
  13. FERROUS SULFATE TAB [Concomitant]
  14. M.V.I. [Concomitant]

REACTIONS (2)
  - BACK PAIN [None]
  - OSTEOMYELITIS [None]
